FAERS Safety Report 7305590-7 (Version None)
Quarter: 2011Q1

REPORT INFORMATION
  Report Type: 
  Country: None (occurrence: None)
  Receive Date: 20110222
  Receipt Date: 20110127
  Transmission Date: 20110831
  Serious: No
  Sender: FDA-Public Use
  Company Number: US-B.I. PHARMACEUTICALS,INC./RIDGEFIELD-2011-BP-02300BP

PATIENT
  Sex: Female

DRUGS (7)
  1. METFORMIN [Concomitant]
     Indication: DIABETES MELLITUS
  2. PRADAXA [Suspect]
     Indication: ATRIAL FIBRILLATION
     Dosage: 300 MG
     Route: 048
     Dates: start: 20110121
  3. PRAVASTATIN [Concomitant]
     Indication: BLOOD CHOLESTEROL INCREASED
     Dosage: 40 MG
  4. BENICAR [Concomitant]
     Indication: HYPERTENSION
     Dosage: 40 MG
  5. AMLODIPINE [Concomitant]
  6. TRIAMTERENE [Concomitant]
     Indication: DIURETIC THERAPY
  7. HYDROCHLOROTHIAZIDE [Concomitant]
     Indication: DIURETIC THERAPY

REACTIONS (7)
  - ERYTHEMA [None]
  - BLOOD PRESSURE INCREASED [None]
  - CARDIAC DISORDER [None]
  - NASAL DISCOMFORT [None]
  - LIP SWELLING [None]
  - FEELING HOT [None]
  - TREMOR [None]
